FAERS Safety Report 7690153-4 (Version None)
Quarter: 2011Q3

REPORT INFORMATION
  Report Type: 
  Country: None (occurrence: None)
  Receive Date: 20110818
  Receipt Date: 20110808
  Transmission Date: 20111222
  Serious: Yes (Hospitalization, Other)
  Sender: FDA-Public Use
  Company Number: FR-JNJFOC-20110406992

PATIENT
  Age: 86 Year
  Sex: Male

DRUGS (7)
  1. RISPERDAL [Suspect]
     Indication: PRODUCT USED FOR UNKNOWN INDICATION
     Route: 048
     Dates: end: 20110331
  2. FUROSEMIDE [Concomitant]
     Route: 065
  3. MEMANTINE HYDROCHLORIDE [Concomitant]
     Route: 065
  4. ZOLPIDEM [Suspect]
     Indication: PRODUCT USED FOR UNKNOWN INDICATION
     Route: 048
     Dates: end: 20110331
  5. ALDACTONE [Concomitant]
     Route: 065
  6. POTASSIUM CHLORIDE [Concomitant]
     Route: 065
  7. BISOPROLOL FUMARATE [Concomitant]
     Route: 065

REACTIONS (4)
  - HYPOVENTILATION [None]
  - BRONCHIAL OBSTRUCTION [None]
  - TOXICITY TO VARIOUS AGENTS [None]
  - SOMNOLENCE [None]
